FAERS Safety Report 10914210 (Version 1)
Quarter: 2015Q1

REPORT INFORMATION
  Report Type: Spontaneous
  Country: US (occurrence: None)
  Receive Date: 20150310
  Receipt Date: 20150310
  Transmission Date: 20150721
  Serious: Yes (Life-Threatening)
  Sender: FDA-Public Use
  Company Number: 2773555

PATIENT
  Age: 60 Year
  Sex: Male
  Weight: 120 kg

DRUGS (6)
  1. PALONOSETRON HYDROCHLORIDE [Concomitant]
     Active Substance: PALONOSETRON HYDROCHLORIDE
  2. DIPHENHYDRAMINE [Concomitant]
     Active Substance: DIPHENHYDRAMINE
  3. OXALIPLATIN INJECTION (OXALIPLATIN) [Suspect]
     Active Substance: OXALIPLATIN
     Indication: NEOPLASM MALIGNANT
     Dosage: 2 HR DAILY  X 1 DAY,?(NOT OTHERWISE SPECIFIED)? ?1306
     Dates: start: 20150226, end: 20150226
  4. TAXOTERE [Concomitant]
     Active Substance: DOCETAXEL
  5. OXALIPLATIN INJECTION (OXALIPLATIN) [Suspect]
     Active Substance: OXALIPLATIN
     Indication: NEOPLASM MALIGNANT
     Dosage: (NOT OTHERWISE SPECIFIED)??1306
     Route: 042
     Dates: start: 20150226, end: 20150226
  6. DEXAMETHASONE. [Concomitant]
     Active Substance: DEXAMETHASONE

REACTIONS (6)
  - Seizure [None]
  - Cardio-respiratory arrest [None]
  - Urinary incontinence [None]
  - Paraesthesia [None]
  - Flushing [None]
  - Cyanosis [None]

NARRATIVE: CASE EVENT DATE: 20150226
